FAERS Safety Report 5712701-3 (Version None)
Quarter: 2008Q2

REPORT INFORMATION
  Report Type: 
  Country: None (occurrence: None)
  Receive Date: 20080418
  Receipt Date: 20080408
  Transmission Date: 20081010
  Serious: Yes (Hospitalization)
  Sender: FDA-Public Use
  Company Number: 163-20785-08040596

PATIENT
  Age: 59 Year
  Sex: Female
  Weight: 109 kg

DRUGS (41)
  1. THALOMID [Suspect]
     Indication: MULTIPLE MYELOMA
     Dosage: 200-100 MG, QD X 4 DAYS, ORAL
     Route: 048
     Dates: start: 20060523
  2. VELCADE [Suspect]
     Indication: MULTIPLE MYELOMA
     Dosage: 1 MG/M2,
     Dates: start: 20060517
  3. DEXAMETHASONE TAB [Suspect]
     Indication: MULTIPLE MYELOMA
     Dosage: 40 MG,; 40 MG,
     Dates: start: 20060523, end: 20060713
  4. DEXAMETHASONE TAB [Suspect]
     Indication: MULTIPLE MYELOMA
     Dosage: 40 MG,; 40 MG,
     Dates: start: 20060822
  5. CISPLATIN [Suspect]
     Indication: MULTIPLE MYELOMA
     Dosage: 10 MG/M2,
     Dates: start: 20060523
  6. ADRIAMYCIN PFS [Suspect]
     Indication: MULTIPLE MYELOMA
     Dosage: 10MG/M2,
     Dates: start: 20060523
  7. CYCLOPHOSPHAMIDE [Suspect]
     Indication: MULTIPLE MYELOMA
     Dosage: 400 MG/M2,
     Dates: start: 20060523
  8. ETOPOSIDE [Suspect]
     Indication: MULTIPLE MYELOMA
     Dosage: 40 MG/M2,
     Dates: start: 20060523
  9. MELPHALAN (MELPHALAN) [Suspect]
     Indication: MULTIPLE MYELOMA
     Dosage: 200 MG/M2
     Dates: start: 20060823
  10. DIOVAN [Concomitant]
  11. FUROSEMIDE [Concomitant]
  12. FEXOFENADINE HCL (FEXOFENADINE) (TABLETS) [Concomitant]
  13. VYTORIN (INEGY) (TABLETS) [Concomitant]
  14. PAROXETINE HCL (PAROXETINE HYDROCHLORIDE) (10 MILLIGRAM, TABLETS) [Concomitant]
  15. FLONASE (FLUTICASONE PROPIONATE) (AEROSOL FOR INHALATION) [Concomitant]
  16. DICYCLOMINE (DICYCLOVERINE HYDROCHLORIDE) (CAPSULES) [Concomitant]
  17. PROPHYPHENE (DEXTROPROPOXYPHENE) (TABLETS) [Concomitant]
  18. LORAZEPAM (LORAZEPAM) (TABLETS) [Concomitant]
  19. LEVSIN (HYOSCYAMINE SULFATE) (TABLETS) [Concomitant]
  20. FLEXERIL [Concomitant]
  21. CARAFATE (SUCRALFATE) (TABLETS) [Concomitant]
  22. LACTULOSE [Concomitant]
  23. FLAGYL [Concomitant]
  24. HEPARIN / PORCINE (HEPARIN) (SOLUTION) [Concomitant]
  25. SODIUM CHLORIDE [Concomitant]
  26. DURAGESIC-100 [Concomitant]
  27. TUMS CHEWABLES (CALCIUM CARBONATE) (CHEWABLE TABLET) [Concomitant]
  28. LEVAQUIN [Concomitant]
  29. FLUCONAZOLE (FLUCONAZOLE) (TABLETS) [Concomitant]
  30. ACYCLOVIR (ACICLOVIR) (TABLETS) [Concomitant]
  31. RANITIDINE (RANITIDINE) (TABLETS) [Concomitant]
  32. REGLAN (METOCLOPRAMIDE) (TABLETS) [Concomitant]
  33. FLUCONAZOLE [Concomitant]
  34. PREVACID [Concomitant]
  35. FOLIC ACID [Concomitant]
  36. MULTIVITAMIN [Concomitant]
  37. TRIAMCINALONE (TRIAMCINOLONE ACETONIDE) (OINTMENT) [Concomitant]
  38. VALCYTE [Concomitant]
  39. INVANZ (ERTAPENEM SODIUM) [Concomitant]
  40. DIFLUCAN [Concomitant]
  41. CARAFATE [Concomitant]

REACTIONS (7)
  - COLITIS [None]
  - CYTOMEGALOVIRUS INFECTION [None]
  - DIZZINESS POSTURAL [None]
  - ENTERITIS [None]
  - EYE ROLLING [None]
  - LOSS OF CONSCIOUSNESS [None]
  - SYNCOPE VASOVAGAL [None]
